FAERS Safety Report 7551087-9 (Version None)
Quarter: 2011Q2

REPORT INFORMATION
  Report Type: 
  Country: None (occurrence: None)
  Receive Date: 20110616
  Receipt Date: 20110613
  Transmission Date: 20111010
  Serious: Yes (Hospitalization, Disabling, Other)
  Sender: FDA-Public Use
  Company Number: US-BRISTOL-MYERS SQUIBB COMPANY-14801526

PATIENT
  Age: 71 Year
  Sex: Male

DRUGS (23)
  1. CREON [Concomitant]
     Dosage: 1 DF = 20000 U
     Route: 048
  2. IMODIUM [Concomitant]
     Indication: DIARRHOEA
     Dosage: 2 DF = 2 TAB
     Route: 048
     Dates: start: 20090401
  3. MAGNESIUM SULFATE [Concomitant]
     Indication: VITAMIN SUPPLEMENTATION
     Route: 048
  4. BONIVA [Concomitant]
     Route: 048
  5. CALCITRIOL [Concomitant]
     Indication: MINERAL SUPPLEMENTATION
     Route: 048
  6. CENTRUM SILVER [Concomitant]
     Indication: VITAMIN SUPPLEMENTATION
     Dosage: 2DF = 2TABS
     Route: 048
  7. METOPROLOL TARTRATE [Concomitant]
     Route: 048
  8. AMILORIDE HYDROCHLORIDE [Concomitant]
     Indication: POLYURIA
     Route: 048
  9. CELEBREX [Concomitant]
     Route: 048
  10. TRICOR [Concomitant]
     Route: 048
  11. DESYREL [Concomitant]
     Indication: DEPRESSION
     Route: 048
  12. TYLENOL-500 [Concomitant]
     Indication: ANALGESIC THERAPY
     Route: 048
  13. VESICARE [Concomitant]
     Dosage: IN THE EVENING
     Route: 048
     Dates: start: 20090318
  14. WARFARIN SODIUM [Suspect]
     Indication: THROMBOSIS PROPHYLAXIS
     Dosage: INTERRUPTED ON 29SEP09; RESTARTED 06-NOV-2009
     Route: 048
     Dates: start: 20090330
  15. NIACIN [Concomitant]
     Indication: HYPERLIPIDAEMIA
     Route: 048
  16. ACETAMINOPHEN AND HYDROCODONE BITARTRATE [Concomitant]
     Indication: ANALGESIC THERAPY
     Dosage: 1 DF = 10/325(NO UNITS)
     Route: 048
  17. LOMOTIL [Concomitant]
     Indication: DIARRHOEA
     Dosage: 1 DF = 1 TABS
     Route: 048
     Dates: start: 20090401
  18. PEPCID [Concomitant]
     Route: 048
  19. ALTACE [Concomitant]
     Route: 048
     Dates: start: 20090506
  20. PLACEBO [Suspect]
     Indication: THROMBOSIS PROPHYLAXIS
     Dosage: INTERRUPTED ON 29SEP09; RESTARTED 06-NOV-2009
     Route: 048
     Dates: start: 20090330
  21. DIGOXIN [Suspect]
     Indication: ARRHYTHMIA
     Route: 048
     Dates: end: 20090101
  22. CITRACAL + D [Concomitant]
     Indication: VITAMIN SUPPLEMENTATION
     Dosage: 3 DF = 3 TAB
     Route: 048
  23. CLONAZEPAM [Concomitant]
     Route: 048

REACTIONS (2)
  - TOXICITY TO VARIOUS AGENTS [None]
  - RENAL FAILURE ACUTE [None]
